FAERS Safety Report 23851119 (Version 2)
Quarter: 2024Q2

REPORT INFORMATION
  Report Type: Spontaneous
  Country: AU (occurrence: AU)
  Receive Date: 20240514
  Receipt Date: 20240612
  Transmission Date: 20240716
  Serious: Yes (Hospitalization)
  Sender: FDA-Public Use
  Company Number: AU-JNJFOC-20240510856

PATIENT
  Sex: Female

DRUGS (5)
  1. STELARA [Interacting]
     Active Substance: USTEKINUMAB
     Indication: Crohn^s disease
     Route: 040
  2. STELARA [Interacting]
     Active Substance: USTEKINUMAB
     Route: 058
  3. PALEXIA [Concomitant]
     Active Substance: TAPENTADOL HYDROCHLORIDE
     Indication: Pain
     Dosage: AT NIGHT
  4. NORTRIPTYLINE [Concomitant]
     Active Substance: NORTRIPTYLINE
     Indication: Pain
  5. XARELTO [Concomitant]
     Active Substance: RIVAROXABAN
     Indication: Embolism

REACTIONS (4)
  - Spinal fracture [Unknown]
  - Haemorrhage [Unknown]
  - Diarrhoea [Unknown]
  - Drug interaction [Unknown]

NARRATIVE: CASE EVENT DATE: 20240401
